FAERS Safety Report 9827636 (Version 3)
Quarter: 2014Q2

REPORT INFORMATION
  Report Type: Spontaneous
  Country: US (occurrence: US)
  Receive Date: 20140117
  Receipt Date: 20140627
  Transmission Date: 20141212
  Serious: Yes (Death, Hospitalization, Other)
  Sender: FDA-Public Use
  Company Number: US-PFIZER INC-2014013460

PATIENT
  Age: 69 Year
  Sex: Female
  Weight: 68.03 kg

DRUGS (3)
  1. REVATIO [Suspect]
     Indication: PULMONARY HYPERTENSION
     Dosage: 20 MG, 3X/DAY
     Route: 048
     Dates: start: 2007
  2. REVATIO [Suspect]
     Dosage: 20 MG, 6X/DAY
     Dates: end: 20140527
  3. MORPHINE [Concomitant]
     Indication: PAIN
     Dosage: UNK

REACTIONS (8)
  - Neoplasm malignant [Fatal]
  - Pulmonary hypertension [Fatal]
  - Brain neoplasm [Unknown]
  - Small cell lung cancer [Unknown]
  - Small cell carcinoma [Unknown]
  - Malignant neoplasm of eye [Recovered/Resolved]
  - Limb discomfort [Unknown]
  - Dysphagia [Not Recovered/Not Resolved]
